FAERS Safety Report 17910306 (Version 4)
Quarter: 2020Q3

REPORT INFORMATION
  Report Type: Spontaneous
  Country: JP (occurrence: JP)
  Receive Date: 20200617
  Receipt Date: 20200804
  Transmission Date: 20201103
  Serious: Yes (Other)
  Sender: FDA-Public Use
  Company Number: JP-AMGEN-JPNSP2020089599

PATIENT
  Age: 82 Year
  Sex: Female

DRUGS (9)
  1. ALFACALCIDOL [Concomitant]
     Active Substance: ALFACALCIDOL
     Indication: OSTEOPOROSIS
     Dosage: 1 MICROGRAM, QD
     Dates: start: 20141217, end: 20200423
  2. LANSOPRAZOLE. [Concomitant]
     Active Substance: LANSOPRAZOLE
     Dosage: 15 MILLIGRAM, QD
     Dates: start: 20161029, end: 20200423
  3. ASPIRIN [ACETYLSALICYLIC ACID] [Concomitant]
     Active Substance: ASPIRIN
     Dosage: UNK
     Dates: start: 20170802, end: 20200423
  4. CALCIUM L?ASPARTATE [Concomitant]
     Dosage: 600MG DIVIDED INTO 3 DOSES, QD
     Dates: start: 20141217, end: 20200423
  5. EVENITY [Suspect]
     Active Substance: ROMOSOZUMAB-AQQG
     Indication: MULTIPLE FRACTURES
  6. LYRICA [Concomitant]
     Active Substance: PREGABALIN
     Dosage: 50MG DIVIDED INTO 2 DOSES, QD
     Dates: start: 20160119, end: 20200423
  7. EVENITY [Suspect]
     Active Substance: ROMOSOZUMAB-AQQG
     Indication: OSTEOPOROSIS
     Dosage: 210 MILLIGRAM, QMO
     Route: 058
     Dates: start: 20200131, end: 20200321
  8. CALONAL [Concomitant]
     Active Substance: ACETAMINOPHEN
     Dosage: 800MG DIVIDED INTO 2 DOSES, QD
     Dates: start: 20150513
  9. REBAMIPIDE [Concomitant]
     Active Substance: REBAMIPIDE
     Dosage: 200MG DIVIDED INTO 2 DOSES, QD
     Dates: start: 20141217, end: 20200423

REACTIONS (3)
  - Deep vein thrombosis [Recovering/Resolving]
  - Blister [Recovering/Resolving]
  - Skin ulcer [Recovering/Resolving]

NARRATIVE: CASE EVENT DATE: 20200321
